FAERS Safety Report 18863795 (Version 1)
Quarter: 2021Q1

REPORT INFORMATION
  Report Type: Spontaneous
  Country: US (occurrence: US)
  Receive Date: 20210208
  Receipt Date: 20210208
  Transmission Date: 20210420
  Serious: Yes (Other)
  Sender: FDA-Public Use
  Company Number: US-ANIPHARMA-2021-US-002603

PATIENT
  Age: 85 Year
  Sex: Female

DRUGS (9)
  1. NITROFURANTOIN. [Suspect]
     Active Substance: NITROFURANTOIN
     Route: 065
     Dates: start: 202007, end: 202010
  2. METOPROLOL. [Suspect]
     Active Substance: METOPROLOL
     Route: 065
     Dates: start: 202009, end: 202010
  3. FLECAINIDE ACETATE (NON?SPECIFIC) [Suspect]
     Active Substance: FLECAINIDE ACETATE
     Indication: PRODUCT USED FOR UNKNOWN INDICATION
     Dosage: 50 MG EVERY 12 HOURS
     Route: 065
     Dates: start: 202009, end: 202010
  4. UNSPECIFIED MEDICATION [Suspect]
     Active Substance: UNSPECIFIED INGREDIENT
     Route: 065
     Dates: start: 202007
  5. PROPAFENONE. [Suspect]
     Active Substance: PROPAFENONE
     Dosage: 225 MG EVERY 12 HOURS
     Route: 065
     Dates: start: 202007, end: 20210117
  6. NP THYROID [Suspect]
     Active Substance: LEVOTHYROXINE\LIOTHYRONINE
     Dosage: 90MG ONCE DAILY; UNSPECIFIED DOSE ONCE DAILY; 105MG ONCE DAILY;
     Route: 048
     Dates: start: 2020
  7. POTASSIUM [Concomitant]
     Active Substance: POTASSIUM
     Route: 065
  8. XARELTO [Suspect]
     Active Substance: RIVAROXABAN
     Route: 065
     Dates: start: 202007
  9. HYDROCHLOROTHIAZIDE. [Concomitant]
     Active Substance: HYDROCHLOROTHIAZIDE
     Route: 065

REACTIONS (7)
  - Feeling abnormal [Unknown]
  - Fall [Recovered/Resolved with Sequelae]
  - Dizziness [Unknown]
  - Hip surgery [Unknown]
  - Hip fracture [Unknown]
  - Malaise [Unknown]
  - Nausea [Recovered/Resolved]

NARRATIVE: CASE EVENT DATE: 202009
